FAERS Safety Report 8350591-3 (Version None)
Quarter: 2012Q2

REPORT INFORMATION
  Report Type: 
  Country: None (occurrence: None)
  Receive Date: 20120510
  Receipt Date: 20120504
  Transmission Date: 20120825
  Serious: Yes (Life-Threatening, Hospitalization, Disabling, Other)
  Sender: FDA-Public Use
  Company Number: GB-MERCK-1205USA01197

PATIENT
  Age: 59 Year
  Sex: Female
  Weight: 54 kg

DRUGS (8)
  1. ISENTRESS [Suspect]
     Indication: HIV TEST
     Route: 048
     Dates: start: 20120101, end: 20120326
  2. TRUVADA [Suspect]
     Indication: HIV TEST
     Route: 065
     Dates: start: 20111201, end: 20120326
  3. VALGANCICLOVIR HYDROCHLORIDE [Concomitant]
     Route: 065
  4. RIFAMPIN [Concomitant]
     Route: 065
  5. MOXIFLOXACIN HYDROCHLORIDE [Concomitant]
     Route: 065
  6. OMEPRAZOLE [Concomitant]
     Route: 065
  7. EFAVIRENZ [Concomitant]
     Route: 065
     Dates: start: 20111201
  8. MIRTAZAPINE [Concomitant]
     Route: 065

REACTIONS (2)
  - GASTROINTESTINAL HAEMORRHAGE [None]
  - HAEMOGLOBIN DECREASED [None]
